FAERS Safety Report 10272660 (Version 1)
Quarter: 2014Q2

REPORT INFORMATION
  Report Type: Spontaneous
  Country: US (occurrence: None)
  Receive Date: 20140630
  Receipt Date: 20140630
  Transmission Date: 20141212
  Serious: Yes (Death)
  Sender: FDA-Public Use
  Company Number: SYM-2014-22204

PATIENT
  Age: 47 Year
  Sex: Male

DRUGS (3)
  1. 5 FU (FLUOROURACIL) (FLUOROURACIL) [Suspect]
     Indication: PRODUCT USED FOR UNKNOWN INDICATION
  2. OXALIPLATIN (OXALIPLATIN) [Suspect]
     Indication: PRODUCT USED FOR UNKNOWN INDICATION
  3. FOLINIC ACID [Suspect]
     Indication: PRODUCT USED FOR UNKNOWN INDICATION

REACTIONS (1)
  - Death [None]
